FAERS Safety Report 19920366 (Version 1)
Quarter: 2021Q4

REPORT INFORMATION
  Report Type: Spontaneous
  Country: FR (occurrence: FR)
  Receive Date: 20211006
  Receipt Date: 20211006
  Transmission Date: 20220303
  Serious: Yes (Hospitalization, Other)
  Sender: FDA-Public Use
  Company Number: FR-ABBVIE-21K-056-4102432-00

PATIENT
  Age: 72 Year
  Sex: Female
  Weight: 58 kg

DRUGS (9)
  1. VALPROATE SODIUM [Suspect]
     Active Substance: VALPROATE SODIUM
     Indication: Product used for unknown indication
     Dosage: 1 TABLET IN MORNING AND 1 TABLET IN EVENING
     Route: 048
     Dates: start: 20181011
  2. VALPROATE SODIUM [Suspect]
     Active Substance: VALPROATE SODIUM
     Dosage: 3 DF, UNK
     Route: 048
  3. VALPROMIDE [Suspect]
     Active Substance: VALPROMIDE
     Indication: Affective disorder
     Dosage: 2 IN THE MORNING AND 2 IN THE EVENING
     Route: 048
     Dates: end: 20181211
  4. CALCIUM\CHOLECALCIFEROL [Concomitant]
     Active Substance: CALCIUM\CHOLECALCIFEROL
     Indication: Product used for unknown indication
  5. MOVICOL [Concomitant]
     Active Substance: POLYETHYLENE GLYCOL 3350\POTASSIUM CHLORIDE\SODIUM BICARBONATE\SODIUM CHLORIDE
     Indication: Product used for unknown indication
  6. ROWASA [Concomitant]
     Active Substance: MESALAMINE
     Indication: Product used for unknown indication
  7. SEPIA [Concomitant]
     Active Substance: SEPIA OFFICINALIS JUICE
     Indication: Product used for unknown indication
  8. ARSENICUM ALBUM [Concomitant]
     Active Substance: HOMEOPATHICS
     Indication: Product used for unknown indication
  9. DULCILARMES [Concomitant]
     Indication: Product used for unknown indication

REACTIONS (10)
  - Generalised tonic-clonic seizure [Unknown]
  - Hemiparesis [Unknown]
  - Status epilepticus [Recovered/Resolved]
  - Restless legs syndrome [Not Recovered/Not Resolved]
  - Fall [Unknown]
  - Fatigue [Unknown]
  - Pyrexia [Unknown]
  - Headache [Unknown]
  - Nausea [Not Recovered/Not Resolved]
  - Vertigo [Not Recovered/Not Resolved]

NARRATIVE: CASE EVENT DATE: 20180904
